FAERS Safety Report 7384723-0 (Version None)
Quarter: 2011Q1

REPORT INFORMATION
  Report Type: 
  Country: None (occurrence: None)
  Receive Date: 20110330
  Receipt Date: 20110322
  Transmission Date: 20110831
  Serious: Yes (Hospitalization, Other)
  Sender: FDA-Public Use
  Company Number: US-ELI_LILLY_AND_COMPANY-US201101006241

PATIENT
  Sex: Male
  Weight: 57.143 kg

DRUGS (2)
  1. ALIMTA [Suspect]
     Dosage: 500 MG/M2, WEEKLY (1/W)
     Route: 042
     Dates: start: 20100317, end: 20100407
  2. VITAMIN B-12 [Concomitant]
     Dosage: 1000 MG, UNK
     Dates: start: 20100217

REACTIONS (1)
  - DISEASE PROGRESSION [None]
